FAERS Safety Report 6808741-3 (Version None)
Quarter: 2010Q2

REPORT INFORMATION
  Report Type: 
  Country: None (occurrence: None)
  Receive Date: 20100629
  Receipt Date: 20090905
  Transmission Date: 20101027
  Serious: No
  Sender: FDA-Public Use
  Company Number: US-PFIZER INC-2009269178

PATIENT
  Sex: Female

DRUGS (1)
  1. ALPRAZOLAM [Suspect]
     Route: 048

REACTIONS (5)
  - ABDOMINAL PAIN UPPER [None]
  - DRUG INEFFECTIVE [None]
  - MALAISE [None]
  - NECK PAIN [None]
  - NERVOUSNESS [None]
